FAERS Safety Report 7684878-4 (Version None)
Quarter: 2011Q3

REPORT INFORMATION
  Report Type: 
  Country: None (occurrence: None)
  Receive Date: 20110810
  Receipt Date: 20110730
  Transmission Date: 20111222
  Serious: Yes (Hospitalization, Other)
  Sender: FDA-Public Use
  Company Number: 2011SP035917

PATIENT
  Sex: Female

DRUGS (3)
  1. PEG-INTRON [Suspect]
     Indication: HEPATITIS C
     Dates: start: 20110624
  2. RIBAVIRIN [Suspect]
     Indication: HEPATITIS C
     Dates: start: 20110624
  3. TELAPREVIR [Suspect]
     Indication: HEPATITIS C
     Dates: start: 20110624

REACTIONS (3)
  - ARTHRITIS BACTERIAL [None]
  - PULMONARY EMBOLISM [None]
  - SEPSIS [None]
